FAERS Safety Report 19196978 (Version 1)
Quarter: 2021Q2

REPORT INFORMATION
  Report Type: Spontaneous
  Country: US (occurrence: US)
  Receive Date: 20210430
  Receipt Date: 20210430
  Transmission Date: 20210717
  Serious: No
  Sender: FDA-Public Use
  Company Number: US-ASPEN-GLO2021US001171

PATIENT

DRUGS (1)
  1. BENZTROPINE MESYLATE. [Suspect]
     Active Substance: BENZTROPINE MESYLATE
     Indication: EXTRAPYRAMIDAL DISORDER
     Dosage: UNK
     Route: 065

REACTIONS (2)
  - Therapeutic product effect incomplete [Unknown]
  - Vision blurred [Recovered/Resolved]
